FAERS Safety Report 25836994 (Version 1)
Quarter: 2025Q3

REPORT INFORMATION
  Report Type: Spontaneous
  Country: US (occurrence: None)
  Receive Date: 20250922
  Receipt Date: 20250922
  Transmission Date: 20251020
  Serious: Yes (Other)
  Sender: FDA-CTU
  Company Number: None

PATIENT
  Sex: Female
  Weight: 79.38 kg

DRUGS (14)
  1. GLIMEPIRIDE [Suspect]
     Active Substance: GLIMEPIRIDE
     Dosage: FREQUENCY : DAILY;?
     Dates: start: 202508, end: 20250825
  2. METFORMIN HYDROCHLORIDE [Concomitant]
     Active Substance: METFORMIN HYDROCHLORIDE
  3. METFORMIN [Concomitant]
     Active Substance: METFORMIN HYDROCHLORIDE
  4. Copaxone 20 ml daily injectable [Concomitant]
  5. Metformin ER 350mg 2 x day [Concomitant]
  6. tizanide tablets 1/2 to 1 per night [Concomitant]
  7. Armour Thyroid 120 mg, tablets 1/day [Concomitant]
  8. ATORVASTATIN [Concomitant]
     Active Substance: ATORVASTATIN
  9. Magnesium (4) 250 mg tablets [Concomitant]
  10. D3 1 TABLET [Concomitant]
  11. B12 1 TABLET [Concomitant]
  12. Non Iron Vitamin Tablet [Concomitant]
  13. HERBALS\TURMERIC [Concomitant]
     Active Substance: HERBALS\TURMERIC
  14. GINKGO [Concomitant]
     Active Substance: GINKGO

REACTIONS (7)
  - Loss of consciousness [None]
  - Blood glucose decreased [None]
  - Accidental overdose [None]
  - Erythema [None]
  - Dry skin [None]
  - Therapy cessation [None]
  - Skin texture abnormal [None]
